FAERS Safety Report 8625555-2 (Version None)
Quarter: 2012Q3

REPORT INFORMATION
  Report Type: 
  Country: None (occurrence: None)
  Receive Date: 20120827
  Receipt Date: 20120112
  Transmission Date: 20120928
  Serious: Yes (Other)
  Sender: FDA-Public Use
  Company Number: US-ROCHE-1104208

PATIENT
  Sex: Male

DRUGS (5)
  1. CARBOPLATIN [Concomitant]
  2. TAXOTERE [Concomitant]
     Dates: start: 20050301
  3. AVASTIN [Suspect]
     Indication: LUNG NEOPLASM MALIGNANT
     Dates: start: 20051101
  4. TARCEVA [Suspect]
     Indication: PRODUCT USED FOR UNKNOWN INDICATION
     Dates: start: 20050601
  5. TAXOL [Concomitant]

REACTIONS (1)
  - DISEASE PROGRESSION [None]
